FAERS Safety Report 12416837 (Version 1)
Quarter: 2016Q2

REPORT INFORMATION
  Report Type: Spontaneous
  Country: JP (occurrence: JP)
  Receive Date: 20160530
  Receipt Date: 20160530
  Transmission Date: 20160815
  Serious: Yes (Life-Threatening, Hospitalization, Other)
  Sender: FDA-Public Use
  Company Number: JP-PFIZER INC-2016232882

PATIENT
  Age: 71 Year
  Sex: Female

DRUGS (1)
  1. RHEUMATREX [Suspect]
     Active Substance: METHOTREXATE SODIUM
     Indication: RHEUMATOID ARTHRITIS
     Dosage: 4 MG, WEEKLY
     Route: 048
     Dates: start: 1998, end: 201603

REACTIONS (4)
  - Septic shock [Recovered/Resolved]
  - Peritonitis [Unknown]
  - Diverticulitis [Recovered/Resolved with Sequelae]
  - Diverticular perforation [Unknown]

NARRATIVE: CASE EVENT DATE: 20160330
